FAERS Safety Report 6227392-5 (Version None)
Quarter: 2009Q2

REPORT INFORMATION
  Report Type: 
  Country: None (occurrence: None)
  Receive Date: 20090610
  Receipt Date: 20090610
  Transmission Date: 20091009
  Serious: Yes (Hospitalization)
  Sender: FDA-Public Use
  Company Number: None

PATIENT
  Age: 59 Year
  Sex: Male
  Weight: 100.2 kg

DRUGS (2)
  1. LISINOPRIL [Suspect]
     Indication: HYPERTENSION
     Dosage: 20 MG EVERY DAY PO
     Route: 048
     Dates: start: 20030319
  2. SPIRONOLACTONE [Suspect]
     Indication: DIURETIC THERAPY
     Dosage: 50 MG EVERY DAY PO
     Route: 048
     Dates: start: 20070920

REACTIONS (2)
  - HYPERKALAEMIA [None]
  - HYPOTENSION [None]
